FAERS Safety Report 9379860 (Version 2)
Quarter: 2013Q3

REPORT INFORMATION
  Report Type: Spontaneous
  Country: US (occurrence: None)
  Receive Date: 20130627
  Receipt Date: 20130705
  Transmission Date: 20140515
  Serious: Yes (Hospitalization)
  Sender: FDA-Public Use
  Company Number: TPA2013A05768

PATIENT
  Age: 77 Year
  Sex: Male
  Weight: 56.7 kg

DRUGS (2)
  1. ACTOS [Suspect]
     Indication: TYPE 2 DIABETES MELLITUS
     Dates: start: 200804, end: 201304
  2. UNKNOWN MEDICATIONS (ALL OTHER THERAPEUTIC PRODUCTS) [Concomitant]

REACTIONS (6)
  - Cardiac failure congestive [None]
  - Weight decreased [None]
  - Asthenia [None]
  - Gait disturbance [None]
  - Impaired driving ability [None]
  - Mobility decreased [None]
